FAERS Safety Report 13981130 (Version 1)
Quarter: 2017Q3

REPORT INFORMATION
  Report Type: Report from Study
  Country: US (occurrence: US)
  Receive Date: 20170918
  Receipt Date: 20170918
  Transmission Date: 20171128
  Serious: Yes (Death)
  Sender: FDA-Public Use
  Company Number: US-SUN PHARMACEUTICAL INDUSTRIES LTD-2017US-146146

PATIENT
  Sex: Male
  Weight: 71 kg

DRUGS (2)
  1. AZACITIDINE COMP-AZAC+ [Suspect]
     Active Substance: AZACITIDINE
     Indication: NEOPLASM MALIGNANT
     Dosage: UNK
     Route: 058
     Dates: start: 20150929, end: 20151003
  2. SONIDEGIB [Suspect]
     Active Substance: SONIDEGIB
     Indication: NEOPLASM MALIGNANT
     Dosage: UNK
     Route: 048
     Dates: start: 20150929, end: 20151003

REACTIONS (2)
  - Malignant neoplasm progression [Fatal]
  - Acute myeloid leukaemia [Fatal]

NARRATIVE: CASE EVENT DATE: 20151018
